FAERS Safety Report 23510851 (Version 4)
Quarter: 2024Q3

REPORT INFORMATION
  Report Type: Report from Study
  Country: US (occurrence: US)
  Receive Date: 20240212
  Receipt Date: 20240819
  Transmission Date: 20241016
  Serious: Yes (Hospitalization)
  Sender: TAKEDA
  Company Number: US-TAKEDA-2023TUS043684

PATIENT
  Age: 9 Year
  Sex: Male

DRUGS (2)
  1. HUMAN IMMUNOGLOBULIN G [Suspect]
     Active Substance: HUMAN IMMUNOGLOBULIN G
     Indication: Hypogammaglobulinaemia
     Dosage: UNK
     Route: 058
  2. HUMAN IMMUNOGLOBULIN G [Suspect]
     Active Substance: HUMAN IMMUNOGLOBULIN G
     Indication: Primary immunodeficiency syndrome

REACTIONS (6)
  - Illness [Recovering/Resolving]
  - Infection [Unknown]
  - Fall [Unknown]
  - Tooth fracture [Unknown]
  - Conjunctivitis [Not Recovered/Not Resolved]
  - Streptococcal infection [Unknown]

NARRATIVE: CASE EVENT DATE: 20240530
